FAERS Safety Report 16016313 (Version 1)
Quarter: 2019Q1

REPORT INFORMATION
  Report Type: Spontaneous
  Country: US (occurrence: US)
  Receive Date: 20190227
  Receipt Date: 20190227
  Transmission Date: 20190418
  Serious: Yes (Disabling)
  Sender: FDA-Public Use
  Company Number: None

PATIENT
  Age: 55 Year
  Sex: Female
  Weight: 103.5 kg

DRUGS (1)
  1. BUPROPION SR 150 MG [Suspect]
     Active Substance: BUPROPION
     Indication: MENOPAUSE
     Dosage: ?          QUANTITY:180 TABLET(S);?
     Route: 048
     Dates: start: 20190206, end: 20190226

REACTIONS (6)
  - Faeces discoloured [None]
  - Weight increased [None]
  - Urine odour abnormal [None]
  - Abdominal distension [None]
  - Abnormal faeces [None]
  - Breath odour [None]

NARRATIVE: CASE EVENT DATE: 20190227
